FAERS Safety Report 5228326-2 (Version None)
Quarter: 2007Q1

REPORT INFORMATION
  Report Type: 
  Country: None (occurrence: None)
  Receive Date: 20070205
  Receipt Date: 20070124
  Transmission Date: 20070707
  Serious: Yes (Other)
  Sender: FDA-Public Use
  Company Number: FR-JNJFOC-20070106586

PATIENT
  Age: 40 Year
  Sex: Male

DRUGS (2)
  1. REMICADE [Suspect]
     Route: 042
  2. REMICADE [Suspect]
     Indication: ANKYLOSING SPONDYLITIS
     Dosage: DISCONTINUED 2 YEARS PREVIOUSLY
     Route: 042

REACTIONS (4)
  - BLOOD PRESSURE DECREASED [None]
  - BODY TEMPERATURE DECREASED [None]
  - CHILLS [None]
  - TYPE IV HYPERSENSITIVITY REACTION [None]
